FAERS Safety Report 6105749-0 (Version None)
Quarter: 2009Q1

REPORT INFORMATION
  Report Type: 
  Country: None (occurrence: None)
  Receive Date: 20090306
  Receipt Date: 20090227
  Transmission Date: 20090719
  Serious: Yes (Hospitalization)
  Sender: FDA-Public Use
  Company Number: CH-BAYER-200914914GPV

PATIENT
  Age: 74 Year
  Sex: Male

DRUGS (12)
  1. ASPIRIN [Interacting]
     Indication: MYOCARDIAL ISCHAEMIA
     Route: 048
  2. PHENPROCOUMON [Suspect]
     Indication: HEART VALVE REPLACEMENT
     Route: 048
     Dates: start: 19990101
  3. IBUPROFEN [Interacting]
     Indication: PAIN
     Route: 048
     Dates: start: 20080601, end: 20080711
  4. DIGOXIN [Concomitant]
     Indication: DRUG USE FOR UNKNOWN INDICATION
     Route: 048
  5. BISOPROLOL [Concomitant]
     Indication: DRUG USE FOR UNKNOWN INDICATION
     Route: 048
  6. RAMIPRIL [Concomitant]
     Indication: DRUG USE FOR UNKNOWN INDICATION
     Route: 048
  7. TORSEMIDE [Concomitant]
     Indication: DRUG USE FOR UNKNOWN INDICATION
     Route: 048
  8. SPIRONOLACTONE [Concomitant]
     Indication: DRUG USE FOR UNKNOWN INDICATION
     Route: 048
  9. NITROGLYCERIN [Concomitant]
     Indication: DRUG USE FOR UNKNOWN INDICATION
     Route: 062
  10. PANTOPRAZOLE [Concomitant]
     Indication: DRUG USE FOR UNKNOWN INDICATION
     Route: 048
  11. BONIVA [Concomitant]
     Indication: DRUG USE FOR UNKNOWN INDICATION
     Route: 042
  12. INSULIN [Concomitant]
     Indication: DRUG USE FOR UNKNOWN INDICATION
     Route: 058

REACTIONS (4)
  - GASTROINTESTINAL HAEMORRHAGE [None]
  - LABELLED DRUG-DRUG INTERACTION MEDICATION ERROR [None]
  - MELAENA [None]
  - PROTHROMBIN TIME PROLONGED [None]
